FAERS Safety Report 4833413-4 (Version None)
Quarter: 2005Q4

REPORT INFORMATION
  Report Type: 
  Country: None (occurrence: None)
  Receive Date: 20051117
  Receipt Date: 20051102
  Transmission Date: 20060501
  Serious: Yes (Death)
  Sender: FDA-Public Use
  Company Number: GBS051018762

PATIENT
  Age: 31 Year
  Sex: Male
  Weight: 63 kg

DRUGS (2)
  1. PROZAC [Suspect]
     Route: 048
  2. MOCLOBEMIDE [Concomitant]

REACTIONS (14)
  - BRONCHIAL DISORDER [None]
  - CELL DEATH [None]
  - CONTUSION [None]
  - DRUG SCREEN POSITIVE [None]
  - DRUG TOXICITY [None]
  - HEPATIC CONGESTION [None]
  - LARYNGEAL DISORDER [None]
  - PANCREATIC DISORDER [None]
  - PNEUMOCONIOSIS [None]
  - PULMONARY CONGESTION [None]
  - PULMONARY OEDEMA [None]
  - RENAL DISORDER [None]
  - SUBARACHNOID HAEMORRHAGE [None]
  - TRACHEAL DISORDER [None]
